FAERS Safety Report 13425518 (Version 1)
Quarter: 2017Q2

REPORT INFORMATION
  Report Type: Report from Study
  Country: BE (occurrence: BE)
  Receive Date: 20170411
  Receipt Date: 20170411
  Transmission Date: 20170830
  Serious: Yes (Hospitalization)
  Sender: FDA-Public Use
  Company Number: BE-ROCHE-1624450

PATIENT
  Age: 75 Year
  Sex: Male
  Weight: 74.5 kg

DRUGS (15)
  1. EMCONCOR [Concomitant]
     Active Substance: BISOPROLOL FUMARATE
     Indication: HYPERTENSION
     Route: 048
     Dates: start: 20141224
  2. AMLOR [Concomitant]
     Active Substance: AMLODIPINE BESYLATE
     Indication: HYPERTENSION
     Route: 048
  3. FORZATEN [Concomitant]
     Indication: HYPERTENSION
     Route: 048
  4. CRESTOR [Concomitant]
     Active Substance: ROSUVASTATIN CALCIUM
     Indication: HYPERCHOLESTEROLAEMIA
     Route: 048
  5. SOLU-MEDROL [Concomitant]
     Active Substance: METHYLPREDNISOLONE SODIUM SUCCINATE
     Dosage: GENERAL SUPPORT
     Route: 042
     Dates: start: 20150818, end: 20150819
  6. CONTRAMAL [Concomitant]
     Active Substance: TRAMADOL HYDROCHLORIDE
     Indication: PAIN
     Route: 048
     Dates: start: 20150821, end: 20150915
  7. DAFALGAN [Concomitant]
     Active Substance: ACETAMINOPHEN
     Indication: PAIN
     Route: 048
  8. TAVANIC [Concomitant]
     Active Substance: LEVOFLOXACIN
     Indication: URINARY TRACT INFECTION
     Route: 048
     Dates: start: 20150819, end: 20150825
  9. ATEZOLIZUMAB [Suspect]
     Active Substance: ATEZOLIZUMAB
     Indication: BLADDER TRANSITIONAL CELL CARCINOMA METASTATIC
     Dosage: MOST RECENT DOSE PRIOR TO SAE ON 28/JUL/2015
     Route: 042
     Dates: start: 20150728
  10. VIMOVO [Concomitant]
     Active Substance: ESOMEPRAZOLE MAGNESIUM\NAPROXEN
     Indication: PAIN
     Route: 048
  11. ESOMEPRAZOLE [Concomitant]
     Active Substance: ESOMEPRAZOLE
     Indication: PAIN
     Route: 048
  12. PLAVIX [Concomitant]
     Active Substance: CLOPIDOGREL BISULFATE
     Dosage: VASCULAR STENTING
     Route: 048
     Dates: start: 1994
  13. CONTRAMAL [Concomitant]
     Active Substance: TRAMADOL HYDROCHLORIDE
     Route: 048
     Dates: start: 20150915, end: 20151027
  14. ALLOPURINOL. [Concomitant]
     Active Substance: ALLOPURINOL
     Indication: HYPERURICAEMIA
     Route: 048
  15. DUROGESIC [Concomitant]
     Active Substance: FENTANYL
     Dosage: PAIN LEFT SHOULDER, LEFT THORAX, DOSE 50 OTHER
     Route: 062
     Dates: start: 201511, end: 20151120

REACTIONS (1)
  - Hyponatraemia [Recovered/Resolved]

NARRATIVE: CASE EVENT DATE: 20150818
